FAERS Safety Report 4531348-8 (Version None)
Quarter: 2004Q4

REPORT INFORMATION
  Report Type: 
  Country: None (occurrence: None)
  Receive Date: 20041206
  Receipt Date: 20040914
  Transmission Date: 20050328
  Serious: No
  Sender: FDA-Public Use
  Company Number: USA040978334

PATIENT
  Sex: Female

DRUGS (6)
  1. CYMBALTA [Suspect]
     Dosage: 30 MG
     Dates: start: 20040911
  2. PROZAC [Suspect]
     Indication: ANXIETY
  3. XANAX (ALPRAZOLAM DUM) [Concomitant]
  4. BUSPAR [Concomitant]
  5. TRAZODONE HCL [Concomitant]
  6. AMITRIPTYLINE [Concomitant]

REACTIONS (6)
  - ANXIETY [None]
  - FEELING ABNORMAL [None]
  - INSOMNIA [None]
  - NAUSEA [None]
  - STOMACH DISCOMFORT [None]
  - TREMOR [None]
